FAERS Safety Report 17337190 (Version 2)
Quarter: 2020Q1

REPORT INFORMATION
  Report Type: Spontaneous
  Country: CN (occurrence: CN)
  Receive Date: 20200129
  Receipt Date: 20200228
  Transmission Date: 20200409
  Serious: Yes (Other)
  Sender: FDA-Public Use
  Company Number: NVSC2020CN020772

PATIENT

DRUGS (12)
  1. BASILIXIMAB [Suspect]
     Active Substance: BASILIXIMAB
     Indication: IMMUNOSUPPRESSANT DRUG THERAPY
  2. MYCOPHENOLATE MOFETIL. [Concomitant]
     Active Substance: MYCOPHENOLATE MOFETIL
     Indication: PROPHYLAXIS AGAINST GRAFT VERSUS HOST DISEASE
  3. METHOTREXATE. [Concomitant]
     Active Substance: METHOTREXATE
     Indication: STEM CELL TRANSPLANT
     Dosage: 15 MG/M2 ON DAY 1
     Route: 042
  4. CYCLOSPORIN A [Concomitant]
     Active Substance: CYCLOSPORINE
     Indication: PROPHYLAXIS AGAINST GRAFT VERSUS HOST DISEASE
     Dosage: UNK
     Route: 048
  5. CYCLOSPORIN A [Concomitant]
     Active Substance: CYCLOSPORINE
     Indication: IMMUNOSUPPRESSANT DRUG THERAPY
  6. BASILIXIMAB [Suspect]
     Active Substance: BASILIXIMAB
     Indication: ACUTE GRAFT VERSUS HOST DISEASE
  7. CYCLOSPORIN A [Concomitant]
     Active Substance: CYCLOSPORINE
     Indication: STEM CELL TRANSPLANT
     Dosage: 2.5 MG/KG, Q12H FROM DAY 9
     Route: 042
  8. METHOTREXATE. [Concomitant]
     Active Substance: METHOTREXATE
     Indication: IMMUNOSUPPRESSANT DRUG THERAPY
  9. METHOTREXATE. [Concomitant]
     Active Substance: METHOTREXATE
     Indication: PROPHYLAXIS AGAINST GRAFT VERSUS HOST DISEASE
     Dosage: 10 MG/M2 ON DAYS 3, 5 AND 11
     Route: 042
  10. MYCOPHENOLATE MOFETIL. [Concomitant]
     Active Substance: MYCOPHENOLATE MOFETIL
     Indication: STEM CELL TRANSPLANT
     Dosage: 0.25 TO 0.5 G, Q12H
     Route: 048
  11. BASILIXIMAB [Suspect]
     Active Substance: BASILIXIMAB
     Indication: STEM CELL TRANSPLANT
     Dosage: UNK
     Route: 065
  12. MYCOPHENOLATE MOFETIL. [Concomitant]
     Active Substance: MYCOPHENOLATE MOFETIL
     Indication: IMMUNOSUPPRESSANT DRUG THERAPY

REACTIONS (2)
  - Cytomegalovirus chorioretinitis [Unknown]
  - Product use in unapproved indication [Unknown]
